FAERS Safety Report 22381408 (Version 1)
Quarter: 2023Q2

REPORT INFORMATION
  Report Type: Spontaneous
  Country: HU (occurrence: HU)
  Receive Date: 20230530
  Receipt Date: 20230530
  Transmission Date: 20230722
  Serious: Yes (Hospitalization, Other)
  Sender: FDA-Public Use
  Company Number: None

PATIENT
  Age: 69 Year
  Sex: Female

DRUGS (16)
  1. AMLODIPINE AND OLMESARTAN MEDOXOMIL [Suspect]
     Active Substance: AMLODIPINE BESYLATE\OLMESARTAN MEDOXOMIL
     Indication: Hypertension
     Dosage: 10 MG, ONCE PER DAY
  2. AMLODIPINE AND OLMESARTAN MEDOXOMIL [Suspect]
     Active Substance: AMLODIPINE BESYLATE\OLMESARTAN MEDOXOMIL
     Dosage: DOSE FORM: 10 MG RAMIPRIL + 10 MG AMLODIPINE, 1 DF IN THE MORNING
  3. ASPIRIN [Suspect]
     Active Substance: ASPIRIN
     Indication: Hypertension
     Dosage: UNK UNK, ONCE PER DAY
  4. DOXAZOSIN MESYLATE [Suspect]
     Active Substance: DOXAZOSIN MESYLATE
     Indication: Hypertension
     Dosage: UNK UNK, ONCE PER DAY
  5. ALPRAZOLAM [Suspect]
     Active Substance: ALPRAZOLAM
     Indication: Salvage therapy
     Dosage: UNK UNK, 3 TIMES PER DAY (PRN)
  6. ALPRAZOLAM [Suspect]
     Active Substance: ALPRAZOLAM
     Indication: Hypertension
     Dosage: UNK, AS NECESSARY PRN (CAN BE REPEATED IN EVERY HALF AN HOUR)
  7. CAPTOPRIL [Suspect]
     Active Substance: CAPTOPRIL
     Indication: Salvage therapy
     Dosage: UNK,  UNK, PRN (CAN BE REPEATED IN EVERY HALF AN HOUR)
  8. CAPTOPRIL [Suspect]
     Active Substance: CAPTOPRIL
     Indication: Hypertension
     Dosage: UNK UNK, AS NECESSARY
  9. BETAHISTINE [Suspect]
     Active Substance: BETAHISTINE
     Indication: Hypertension
     Dosage: UNK, ONCE PER DAY
  10. NITROGLYCERIN [Suspect]
     Active Substance: NITROGLYCERIN
     Indication: Hypertension
     Dosage: UNK UNK, AS NECESSARY
     Route: 050
  11. NITROGLYCERIN [Suspect]
     Active Substance: NITROGLYCERIN
     Dosage: UNK, PRN (2 PUFFS/0.5 HOURS)
  12. RAMIPRIL [Suspect]
     Active Substance: RAMIPRIL
     Indication: Hypertension
     Dosage: UNK UNK, ONCE PER DAY (BID)
     Route: 048
  13. RAMIPRIL [Suspect]
     Active Substance: RAMIPRIL
     Dosage: 10 MG, ONCE PER DAY (QD)
  14. HYDROCHLOROTHIAZIDE\LOSARTAN POTASSIUM [Suspect]
     Active Substance: HYDROCHLOROTHIAZIDE\LOSARTAN POTASSIUM
     Indication: Hypertension
     Dosage: UNK,  UNK
     Dates: start: 2015
  15. INDAPAMIDE [Suspect]
     Active Substance: INDAPAMIDE
     Indication: Hypertension
     Dosage: UNK UNK, ONCE PER DAY (QD)
  16. RILMENIDINE [Concomitant]
     Active Substance: RILMENIDINE
     Indication: Hypertension
     Dosage: 2 DOSAGE FORM, ONCE PER DAY (2 TABLET AT NOON)

REACTIONS (11)
  - Hypertension [Recovered/Resolved]
  - Overweight [Unknown]
  - Heart valve incompetence [Unknown]
  - Oedema peripheral [Recovered/Resolved]
  - Condition aggravated [Recovered/Resolved]
  - Renal impairment [Unknown]
  - Hyperlipidaemia [Unknown]
  - Left ventricular hypertrophy [Unknown]
  - Angiopathy [Unknown]
  - Hypotension [Recovered/Resolved]
  - Blood pressure fluctuation [Recovered/Resolved]
